FAERS Safety Report 9510521 (Version 1)
Quarter: 2013Q3

REPORT INFORMATION
  Report Type: Report from Study
  Country: US (occurrence: US)
  Receive Date: 20130909
  Receipt Date: 20130909
  Transmission Date: 20140515
  Serious: Yes (Hospitalization)
  Sender: FDA-Public Use
  Company Number: US-ABBOTT-13P-163-1141340-00

PATIENT
  Age: 46 Year
  Sex: Male

DRUGS (12)
  1. HUMIRA [Suspect]
     Indication: PSORIATIC ARTHROPATHY
     Dates: start: 201203, end: 201207
  2. HUMIRA [Suspect]
     Dates: start: 201208
  3. VICTOZA [Suspect]
     Indication: DIABETES MELLITUS
     Dates: start: 201202, end: 201207
  4. METHOTREXATE [Suspect]
     Indication: PRODUCT USED FOR UNKNOWN INDICATION
     Dates: start: 201302, end: 201304
  5. TRAMADOL [Concomitant]
     Indication: BACK PAIN
  6. TRAMADOL [Concomitant]
     Indication: ARTHRITIS
  7. METFORMIN [Concomitant]
     Indication: DIABETES MELLITUS
  8. GLYBURIDE [Concomitant]
     Indication: DIABETES MELLITUS
  9. LANTUS INSULIN [Concomitant]
     Indication: DIABETES MELLITUS
  10. METOPROLOL [Concomitant]
     Indication: HYPERTENSION
  11. AMLODIPINE [Concomitant]
     Indication: HYPERTENSION
  12. LISINOPRIL [Concomitant]
     Indication: PRODUCT USED FOR UNKNOWN INDICATION

REACTIONS (6)
  - Dehydration [Recovered/Resolved]
  - Renal failure [Recovering/Resolving]
  - Liver function test abnormal [Not Recovered/Not Resolved]
  - Hepatic function abnormal [Not Recovered/Not Resolved]
  - Dysentery [Recovered/Resolved]
  - Abdominal discomfort [Recovered/Resolved]
